FAERS Safety Report 24086913 (Version 1)
Quarter: 2024Q3

REPORT INFORMATION
  Report Type: Spontaneous
  Country: KR (occurrence: KR)
  Receive Date: 20240713
  Receipt Date: 20240713
  Transmission Date: 20241017
  Serious: Yes (Other)
  Sender: ROCHE
  Company Number: KR-BoehringerIngelheim-2024-BI-037664

PATIENT
  Age: 69 Year
  Sex: Male

DRUGS (1)
  1. ALTEPLASE [Suspect]
     Active Substance: ALTEPLASE
     Indication: Ischaemic stroke
     Route: 042

REACTIONS (2)
  - Cerebral infarction [Recovering/Resolving]
  - Cerebral reperfusion injury [Recovering/Resolving]
